FAERS Safety Report 19674187 (Version 1)
Quarter: 2021Q3

REPORT INFORMATION
  Report Type: Spontaneous
  Country: FR (occurrence: FR)
  Receive Date: 20210809
  Receipt Date: 20210809
  Transmission Date: 20211014
  Serious: Yes (Hospitalization, Other)
  Sender: FDA-Public Use
  Company Number: FR-PURACAP-FR-2021EPCLIT00831

PATIENT
  Age: 53 Year
  Sex: Female

DRUGS (5)
  1. IBUPROFEN. [Suspect]
     Active Substance: IBUPROFEN
     Indication: ODYNOPHAGIA
     Route: 065
  2. CLAVULANIC ACID [Interacting]
     Active Substance: CLAVULANIC ACID
     Indication: PASTEURELLA INFECTION
     Route: 065
  3. CEFTRIAXONE. [Interacting]
     Active Substance: CEFTRIAXONE
     Indication: PASTEURELLA INFECTION
     Route: 065
  4. AMOXICILLIN. [Interacting]
     Active Substance: AMOXICILLIN
     Indication: PASTEURELLA INFECTION
     Route: 065
  5. METRONIDAZOLE. [Interacting]
     Active Substance: METRONIDAZOLE
     Indication: PASTEURELLA INFECTION
     Route: 065

REACTIONS (1)
  - Bacteraemia [Recovered/Resolved]
